FAERS Safety Report 11123827 (Version 1)
Quarter: 2015Q2

REPORT INFORMATION
  Report Type: Spontaneous
  Country: GB (occurrence: GB)
  Receive Date: 20150520
  Receipt Date: 20150520
  Transmission Date: 20150821
  Serious: Yes (Hospitalization, Disabling, Other)
  Sender: FDA-Public Use
  Company Number: GB-009507513-1505GBR007419

PATIENT
  Age: 30 Year
  Sex: Female
  Weight: 60.32 kg

DRUGS (2)
  1. METHOTREXATE [Concomitant]
     Active Substance: METHOTREXATE
     Route: 048
  2. ELOCON [Suspect]
     Active Substance: MOMETASONE FUROATE
     Indication: DERMATITIS ATOPIC
     Dosage: ONCE A WEEK
     Route: 061
     Dates: start: 20000101, end: 20140301

REACTIONS (12)
  - Oedema [Unknown]
  - Insomnia [Unknown]
  - Eczema [Not Recovered/Not Resolved]
  - Alopecia [Unknown]
  - Steroid withdrawal syndrome [Not Recovered/Not Resolved]
  - Erythema [Not Recovered/Not Resolved]
  - Pruritus [Not Recovered/Not Resolved]
  - Skin exfoliation [Not Recovered/Not Resolved]
  - Lymphadenopathy [Unknown]
  - Pain [Unknown]
  - Wound secretion [Unknown]
  - Skin burning sensation [Not Recovered/Not Resolved]

NARRATIVE: CASE EVENT DATE: 20140303
